FAERS Safety Report 20590358 (Version 1)
Quarter: 2022Q1

REPORT INFORMATION
  Report Type: Spontaneous
  Country: US (occurrence: US)
  Receive Date: 20220314
  Receipt Date: 20220314
  Transmission Date: 20220423
  Serious: Yes (Other)
  Sender: FDA-Public Use
  Company Number: US-FOUNDATIONCB-2022-US-005500

PATIENT
  Sex: 0

DRUGS (1)
  1. ANBESOL REGULAR STRENGTH LIQUID [Suspect]
     Active Substance: BENZOCAINE
     Indication: Product used for unknown indication
     Route: 065

REACTIONS (1)
  - Drug abuse [Unknown]
